FAERS Safety Report 4919616-9 (Version None)
Quarter: 2006Q1

REPORT INFORMATION
  Report Type: 
  Country: None (occurrence: None)
  Receive Date: 20060215
  Receipt Date: 20060206
  Transmission Date: 20060701
  Serious: Yes (Other)
  Sender: FDA-Public Use
  Company Number: HQWYE692507FEB06

PATIENT
  Age: 63 Year
  Sex: Male

DRUGS (13)
  1. ANCARON (AMIODARONE, TABLET) [Suspect]
     Indication: ATRIAL FIBRILLATION
     Dosage: SEE IMAGE
     Route: 048
     Dates: start: 20030207, end: 20030220
  2. ANCARON (AMIODARONE, TABLET) [Suspect]
     Indication: VENTRICULAR FIBRILLATION
     Dosage: SEE IMAGE
     Route: 048
     Dates: start: 20030207, end: 20030220
  3. ANCARON (AMIODARONE, TABLET) [Suspect]
     Indication: VENTRICULAR TACHYCARDIA
     Dosage: SEE IMAGE
     Route: 048
     Dates: start: 20030207, end: 20030220
  4. ANCARON (AMIODARONE, TABLET) [Suspect]
     Indication: ATRIAL FIBRILLATION
     Dosage: SEE IMAGE
     Route: 048
     Dates: start: 20030221, end: 20030423
  5. ANCARON (AMIODARONE, TABLET) [Suspect]
     Indication: VENTRICULAR FIBRILLATION
     Dosage: SEE IMAGE
     Route: 048
     Dates: start: 20030221, end: 20030423
  6. ANCARON (AMIODARONE, TABLET) [Suspect]
     Indication: VENTRICULAR TACHYCARDIA
     Dosage: SEE IMAGE
     Route: 048
     Dates: start: 20030221, end: 20030423
  7. ANCARON (AMIODARONE, TABLET) [Suspect]
     Indication: ATRIAL FIBRILLATION
     Dosage: SEE IMAGE
     Route: 048
     Dates: start: 20030424, end: 20040406
  8. ANCARON (AMIODARONE, TABLET) [Suspect]
     Indication: VENTRICULAR FIBRILLATION
     Dosage: SEE IMAGE
     Route: 048
     Dates: start: 20030424, end: 20040406
  9. ANCARON (AMIODARONE, TABLET) [Suspect]
     Indication: VENTRICULAR TACHYCARDIA
     Dosage: SEE IMAGE
     Route: 048
     Dates: start: 20030424, end: 20040406
  10. CARVEDILOL [Concomitant]
  11. WARFARIN SODIUM [Concomitant]
  12. BAYASPIRINA (ACETYLSALICYLIC ACID) [Concomitant]
  13. MERCAZOLE (THIAMAZOLE) [Concomitant]

REACTIONS (1)
  - CELL MARKER INCREASED [None]
